FAERS Safety Report 14299773 (Version 1)
Quarter: 2017Q4

REPORT INFORMATION
  Report Type: Spontaneous
  Country: US (occurrence: US)
  Receive Date: 20171219
  Receipt Date: 20171219
  Transmission Date: 20180321
  Serious: Yes (Death, Hospitalization, Other)
  Sender: FDA-Public Use
  Company Number: US-AMGEN-USASP2017186593

PATIENT
  Age: 78 Year
  Sex: Female

DRUGS (1)
  1. NEULASTA [Suspect]
     Active Substance: PEGFILGRASTIM
     Indication: PRODUCT USED FOR UNKNOWN INDICATION
     Dosage: UNK
     Route: 065
     Dates: start: 2017

REACTIONS (7)
  - Death [Fatal]
  - Renal impairment [Unknown]
  - Sepsis [Unknown]
  - Seizure [Unknown]
  - Pleural effusion [Unknown]
  - Lethargy [Unknown]
  - Pneumonia [Unknown]

NARRATIVE: CASE EVENT DATE: 2017
